FAERS Safety Report 22325076 (Version 4)
Quarter: 2024Q1

REPORT INFORMATION
  Report Type: Spontaneous
  Country: US (occurrence: US)
  Receive Date: 20230516
  Receipt Date: 20240201
  Transmission Date: 20240410
  Serious: Yes (Hospitalization)
  Sender: FDA-Public Use
  Company Number: US-PFIZER INC-PV202300086410

PATIENT
  Age: 49 Year
  Sex: Female

DRUGS (2)
  1. OXBRYTA [Suspect]
     Active Substance: VOXELOTOR
     Dosage: 300 MILLIGRAMS, 5 TABLETS EVERYDAY IN CLEAR LIQUID
     Route: 048
     Dates: start: 202201
  2. MORPHINE [Concomitant]
     Active Substance: MORPHINE
     Indication: Pain
     Dosage: UNK

REACTIONS (3)
  - Haemoglobin decreased [Unknown]
  - Infection [Unknown]
  - Sickle cell anaemia with crisis [Unknown]
